FAERS Safety Report 9519630 (Version 1)
Quarter: 2013Q1

REPORT INFORMATION
  Report Type: Spontaneous
  Country: US (occurrence: None)
  Receive Date: 20130305
  Receipt Date: 20130305
  Transmission Date: 20140127
  Serious: Yes (Other)
  Sender: FDA-Public Use
  Company Number: 163-21880-11120719

PATIENT
  Age: 87 Year
  Sex: Female

DRUGS (14)
  1. REVLIMID [Suspect]
     Indication: PLASMA CELL MYELOMA
     Dosage: 10 MG, DAILY X 21 DAYS OF 28 DAYS, PO
     Route: 048
     Dates: start: 20110721
  2. DEXAMETHASONE (DEXAMETHASONE) (UNKNOWN) [Concomitant]
  3. ZOMETA (ZOLEDRONIC ACID) (UNKNOWN) [Concomitant]
  4. LABETHALOL (LABETALOL) (UNKNOWN) [Concomitant]
  5. LISINOPRIL (LISINOPRIL) (UNKNOWN) [Concomitant]
  6. PLAVIX (CLOPIDOGREL SULFATE) (UNKNOWN) [Concomitant]
  7. SYNTHROID (LEVOTHYROXINE SODIUM) (UNKNOWN) [Concomitant]
  8. LIPITOR (ATORVASTATIN) (UNKNOWN)? [Concomitant]
  9. FOSAMAX (ALENDRONATE SODIUM) (UNKNOWN) [Concomitant]
  10. FOLIC ACID (FOLIC ACID) (UNKNOWN) [Concomitant]
  11. CALCIUM (CALCIUM)  (UNKNOWN) [Concomitant]
  12. VITAMIN D (ERGOCALCIFEROL) (UNKNOWN)? [Concomitant]
  13. IRON [Concomitant]
  14. ERYTHROPOETIN (EPOETIN ALFA) (UNKNOWN)? [Concomitant]

REACTIONS (1)
  - Thrombocytopenia [None]
